FAERS Safety Report 4543999-5 (Version None)
Quarter: 2004Q4

REPORT INFORMATION
  Report Type: 
  Country: None (occurrence: None)
  Receive Date: 20041229
  Receipt Date: 20041229
  Transmission Date: 20050328
  Serious: Yes (Hospitalization)
  Sender: FDA-Public Use
  Company Number: None

PATIENT
  Sex: Male

DRUGS (17)
  1. GEMCITABINE [Suspect]
     Indication: PANCREATIC CARCINOMA
     Dosage: 700MG/M2  IV DAYS 1 + 8
     Dates: start: 20041119
  2. GEMCITABINE [Suspect]
     Indication: PANCREATIC CARCINOMA
     Dosage: 700MG/M2  IV DAYS 1 + 8
     Dates: start: 20041207
  3. GEMCITABINE [Suspect]
     Indication: PANCREATIC CARCINOMA
     Dosage: 700MG/M2  IV DAYS 1 + 8
     Dates: start: 20041220
  4. GLEEVEC [Suspect]
     Indication: PANCREATIC CARCINOMA
     Dosage: 400MG PO ON DAYS 1-14
     Route: 048
     Dates: start: 20041119, end: 20041128
  5. GLEEVEC [Suspect]
     Indication: PANCREATIC CARCINOMA
     Dosage: 400MG PO ON DAYS 1-14
     Route: 048
     Dates: start: 20041207, end: 20041213
  6. NORVASC [Concomitant]
  7. MONOPRIL [Concomitant]
  8. GLIPIZIDE [Concomitant]
  9. GLUCOPHAGE [Concomitant]
  10. AVANDIA [Concomitant]
  11. TRENTAL [Concomitant]
  12. ELAVIL [Concomitant]
  13. NOVOLIN [Concomitant]
  14. NORCO [Concomitant]
  15. LORAZEPAM [Concomitant]
  16. PERCHLORPERAZINE [Concomitant]
  17. PREDNISONE [Concomitant]

REACTIONS (2)
  - OEDEMA PERIPHERAL [None]
  - SCROTAL OEDEMA [None]
